FAERS Safety Report 8156572-7 (Version None)
Quarter: 2012Q1

REPORT INFORMATION
  Report Type: 
  Country: None (occurrence: None)
  Receive Date: 20120222
  Receipt Date: 20120208
  Transmission Date: 20120608
  Serious: Yes (Hospitalization)
  Sender: FDA-Public Use
  Company Number: GB-TEVA-2010003918

PATIENT
  Sex: Female
  Weight: 66 kg

DRUGS (13)
  1. BENDAMUSTINE [Suspect]
     Route: 042
     Dates: start: 20100608, end: 20100707
  2. METFORMIN HCL [Suspect]
     Route: 048
     Dates: end: 20100728
  3. LANTUS [Concomitant]
  4. RITUXIMAB [Suspect]
     Route: 042
     Dates: start: 20100608, end: 20100707
  5. METFORMIN HCL [Suspect]
     Route: 048
     Dates: start: 19800101
  6. ACYCLOVIR [Concomitant]
     Dates: start: 20100609
  7. AMLODIPINE [Concomitant]
     Dates: start: 19800101
  8. HUMALOG [Concomitant]
     Route: 058
  9. DOMPERIDONE [Concomitant]
     Dates: start: 20100608
  10. CAPTOPRIL [Concomitant]
     Route: 048
     Dates: start: 20090101
  11. CAPTOPRIL [Concomitant]
     Route: 048
     Dates: start: 19800101
  12. ATENOLOL [Concomitant]
     Route: 048
     Dates: start: 19800101
  13. COTRIM [Concomitant]
     Dates: start: 20100619

REACTIONS (5)
  - CHOLESTASIS [None]
  - CONSTIPATION [None]
  - DEHYDRATION [None]
  - LIVER FUNCTION TEST ABNORMAL [None]
  - ANORECTAL DISCOMFORT [None]
